FAERS Safety Report 9484836 (Version 5)
Quarter: 2014Q1

REPORT INFORMATION
  Report Type: Spontaneous
  Country: JP (occurrence: JP)
  Receive Date: 20130828
  Receipt Date: 20140305
  Transmission Date: 20141002
  Serious: Yes (Hospitalization)
  Sender: FDA-Public Use
  Company Number: JP-GLAXOSMITHKLINE-B0917806A

PATIENT
  Age: 61 Year
  Sex: Female

DRUGS (15)
  1. VALTREX [Suspect]
     Indication: HERPES ZOSTER
     Dosage: 500MG PER DAY
     Route: 048
     Dates: start: 20130819, end: 20130819
  2. VALTREX [Suspect]
     Indication: HERPES ZOSTER
     Dosage: 500MG THREE TIMES PER DAY
     Route: 048
     Dates: start: 20130820, end: 20130821
  3. BAYASPIRIN [Concomitant]
     Dosage: 100MG PER DAY
     Route: 048
  4. SIGMART [Concomitant]
     Dosage: 5MG TWICE PER DAY
     Route: 048
  5. CRESTOR [Concomitant]
     Dosage: 2.5MG PER DAY
     Route: 048
  6. REGPARA [Concomitant]
     Dosage: 25MG PER DAY
     Route: 048
  7. CONSTAN [Concomitant]
     Dosage: .4MG PER DAY
     Route: 048
  8. PACLITAXEL [Concomitant]
     Route: 042
     Dates: start: 201212
  9. FUROSEMIDE [Concomitant]
     Route: 065
  10. NITRODERM TTS [Concomitant]
     Route: 062
  11. CHINESE MEDICINE [Concomitant]
     Route: 048
  12. HOKUNALIN [Concomitant]
     Route: 062
  13. CALTAN [Concomitant]
     Route: 048
  14. NAUZELIN [Concomitant]
     Route: 048
  15. LENDORMIN [Concomitant]
     Route: 048

REACTIONS (5)
  - Altered state of consciousness [Recovered/Resolved]
  - Depressed level of consciousness [Recovered/Resolved]
  - Atonic seizures [Recovered/Resolved]
  - Dysarthria [Recovered/Resolved]
  - Incorrect dose administered [Unknown]
